FAERS Safety Report 12294061 (Version 2)
Quarter: 2016Q2

REPORT INFORMATION
  Report Type: Report from Study
  Country: US (occurrence: US)
  Receive Date: 20160422
  Receipt Date: 20160425
  Transmission Date: 20160815
  Serious: Yes (Other)
  Sender: FDA-Public Use
  Company Number: US-ROCHE-1744331

PATIENT

DRUGS (5)
  1. FILGRASTIM [Concomitant]
     Active Substance: FILGRASTIM
     Dosage: TARGET DOSE OF 2-10 X 106 CD34 PLUS CELLS/KG RECIPIENT WEIGHT
     Route: 065
  2. TACROLIMUS. [Suspect]
     Active Substance: TACROLIMUS
     Indication: PROPHYLAXIS AGAINST GRAFT VERSUS HOST DISEASE
     Dosage: STARTING DAY -3, WITH A GOAL TROUGH LEVEL OF 5 -10 NG/ML
     Route: 048
  3. MYCOPHENOLATE MOFETIL. [Suspect]
     Active Substance: MYCOPHENOLATE MOFETIL
     Indication: PROPHYLAXIS AGAINST GRAFT VERSUS HOST DISEASE
     Route: 048
  4. CICLOSPORINE [Suspect]
     Active Substance: CYCLOSPORINE
     Indication: PROPHYLAXIS AGAINST GRAFT VERSUS HOST DISEASE
     Dosage: STARTING DAY -3, WITH A GOAL TROUGH LEVEL OF 200-400 NG/ML
     Route: 065
  5. METHOTREXATE [Suspect]
     Active Substance: METHOTREXATE
     Indication: PROPHYLAXIS AGAINST GRAFT VERSUS HOST DISEASE
     Route: 042

REACTIONS (33)
  - Thrombotic microangiopathy [Unknown]
  - Haemolysis [Unknown]
  - Decreased appetite [Unknown]
  - Confusional state [Unknown]
  - Psychotic disorder [Unknown]
  - Hyperglycaemia [Unknown]
  - Mucosal inflammation [Unknown]
  - Nausea [Unknown]
  - Hyperlipidaemia [Unknown]
  - Dehydration [Unknown]
  - Pain [Unknown]
  - Cataract [Unknown]
  - Diarrhoea [Unknown]
  - Thrombosis [Unknown]
  - Renal failure [Unknown]
  - Liver disorder [Unknown]
  - Vomiting [Unknown]
  - Hypersensitivity [Unknown]
  - Cardiac disorder [Unknown]
  - Hypotension [Unknown]
  - Neutropenia [Unknown]
  - Thrombocytopenia [Unknown]
  - Infection [Unknown]
  - Stomatitis [Unknown]
  - Abdominal pain [Unknown]
  - Asthenia [Unknown]
  - Haematoma [Unknown]
  - Hyponatraemia [Unknown]
  - Rash [Unknown]
  - Leukopenia [Unknown]
  - Respiratory disorder [Unknown]
  - Encephalopathy [Unknown]
  - Oedema [Unknown]
